FAERS Safety Report 5229164-7 (Version None)
Quarter: 2007Q1

REPORT INFORMATION
  Report Type: 
  Country: None (occurrence: None)
  Receive Date: 20070205
  Receipt Date: 20070201
  Transmission Date: 20070707
  Serious: Yes (Hospitalization, Disabling)
  Sender: FDA-Public Use
  Company Number: NL-ROXANE LABORATORIES, INC-2007-DE-00639GD

PATIENT
  Age: 70 Year
  Sex: Female

DRUGS (6)
  1. MORPHINE [Suspect]
     Indication: PROCEDURAL PAIN
     Dosage: 0.2 MG/ML, INFUSION OF 2 ML/H
     Route: 008
  2. BUPIVACAINE [Suspect]
     Indication: PROCEDURAL PAIN
     Dosage: 7.5 MG/ML, INFUSION OF 2 ML/H
     Route: 008
  3. CHLORTHALIDONE [Suspect]
     Indication: HYPERTENSION
  4. METOPROLOL TARTRATE [Suspect]
     Indication: HYPERTENSION
  5. ENALAPRIL MALEATE [Suspect]
     Indication: HYPERTENSION
  6. INSULIN [Concomitant]
     Indication: DIABETES MELLITUS NON-INSULIN-DEPENDENT

REACTIONS (9)
  - BRADYCARDIA [None]
  - HAEMOGLOBIN DECREASED [None]
  - HYPERCAPNIA [None]
  - HYPOKALAEMIA [None]
  - HYPOMAGNESAEMIA [None]
  - HYPOPHOSPHATAEMIA [None]
  - HYPOTENSION [None]
  - PERSONALITY CHANGE [None]
  - UNRESPONSIVE TO STIMULI [None]
